FAERS Safety Report 24607867 (Version 1)
Quarter: 2024Q4

REPORT INFORMATION
  Report Type: Spontaneous
  Country: TW (occurrence: TW)
  Receive Date: 20241112
  Receipt Date: 20241112
  Transmission Date: 20250115
  Serious: Yes (Hospitalization)
  Sender: HETERO
  Company Number: TW-AMAROX PHARMA-HET2024TW04147

PATIENT
  Age: 58 Year
  Sex: Female

DRUGS (1)
  1. ARIPIPRAZOLE [Suspect]
     Active Substance: ARIPIPRAZOLE
     Indication: Delusion of parasitosis
     Dosage: 15 MILLIGRAM, QD
     Route: 065

REACTIONS (4)
  - Delusion of parasitosis [Recovered/Resolved]
  - Extrapyramidal disorder [Recovering/Resolving]
  - Product use in unapproved indication [Unknown]
  - Treatment noncompliance [Unknown]
